FAERS Safety Report 9984605 (Version 2)
Quarter: 2014Q1

REPORT INFORMATION
  Report Type: Report from Study
  Country: US (occurrence: US)
  Receive Date: 20140307
  Receipt Date: 20140307
  Transmission Date: 20141002
  Serious: Yes (Hospitalization)
  Sender: FDA-Public Use
  Company Number: US-TEVA-455869USA

PATIENT
  Age: 68 Year
  Sex: Female

DRUGS (4)
  1. COPAXONE [Suspect]
     Indication: MULTIPLE SCLEROSIS
     Dates: start: 20130911, end: 201312
  2. AMPYRA [Interacting]
     Indication: GAIT DISTURBANCE
     Dates: start: 201312, end: 201312
  3. ANTIHYPERTENSIVES [Interacting]
     Indication: BLOOD PRESSURE
  4. DIURETICS [Interacting]
     Indication: BLOOD PRESSURE

REACTIONS (14)
  - Gout [Recovered/Resolved]
  - Cognitive disorder [Unknown]
  - Renal failure [Unknown]
  - Dehydration [Unknown]
  - Syncope [Unknown]
  - Drug interaction [Unknown]
  - Gait disturbance [Not Recovered/Not Resolved]
  - Abdominal pain upper [Recovered/Resolved]
  - Diarrhoea [Unknown]
  - Vomiting [Recovered/Resolved]
  - Accidental overdose [Unknown]
  - Nausea [Unknown]
  - Balance disorder [Recovered/Resolved]
  - Dizziness [Recovered/Resolved]
